FAERS Safety Report 20504201 (Version 5)
Quarter: 2023Q2

REPORT INFORMATION
  Report Type: Report from Study
  Country: US (occurrence: US)
  Receive Date: 20220222
  Receipt Date: 20230518
  Transmission Date: 20230721
  Serious: Yes (Disabling, Other)
  Sender: FDA-Public Use
  Company Number: US-ABBVIE-22K-163-4287643-00

PATIENT
  Age: 60 Year
  Sex: Male

DRUGS (2)
  1. SKYRIZI [Suspect]
     Active Substance: RISANKIZUMAB-RZAA
     Indication: Psoriasis
     Route: 058
  2. SKYRIZI [Suspect]
     Active Substance: RISANKIZUMAB-RZAA
     Dosage: FORM STRENGTH: 150 MG EVERY 12 WEEKS, STARTING ON WEEK 16
     Route: 058

REACTIONS (3)
  - Brain injury [Recovering/Resolving]
  - Disability [Unknown]
  - Accident [Unknown]

NARRATIVE: CASE EVENT DATE: 20161023
